FAERS Safety Report 10232739 (Version 1)
Quarter: 2014Q2

REPORT INFORMATION
  Report Type: Spontaneous
  Country: CA (occurrence: CA)
  Receive Date: 20140612
  Receipt Date: 20140612
  Transmission Date: 20141212
  Serious: Yes (Other)
  Sender: FDA-Public Use
  Company Number: CA-PFIZER INC-2014158902

PATIENT
  Age: 19 Year
  Sex: Male

DRUGS (9)
  1. MORPHINE SULFATE [Suspect]
     Dosage: UNK
  2. KETAMINE HCL [Suspect]
     Dosage: UNK
  3. HEROIN [Suspect]
     Route: 045
  4. HEROIN [Suspect]
     Dosage: UNK
  5. TYLENOL 3S [Suspect]
     Dosage: UNK
     Route: 048
  6. LSD [Suspect]
     Dosage: UNK
  7. METHYLENEDIOXYMETHAMPHETAMINE [Suspect]
     Dosage: UNK
  8. COCAINE [Suspect]
     Dosage: UNK
  9. DIMETHYLTRYPTAMINE [Suspect]
     Dosage: UNK

REACTIONS (8)
  - Polysubstance dependence [Unknown]
  - Substance abuse [Unknown]
  - Emotional disorder [Unknown]
  - Depression [Unknown]
  - Euphoric mood [Unknown]
  - Apathy [Unknown]
  - Drug diversion [Unknown]
  - Depression [None]
